FAERS Safety Report 22234505 (Version 1)
Quarter: 2023Q2

REPORT INFORMATION
  Report Type: Spontaneous
  Country: US (occurrence: None)
  Receive Date: 20230420
  Receipt Date: 20230420
  Transmission Date: 20230721
  Serious: No
  Sender: FDA-Public Use
  Company Number: US-ROCHE-3186537

PATIENT
  Sex: Male
  Weight: 63.560 kg

DRUGS (1)
  1. ESBRIET [Suspect]
     Active Substance: PIRFENIDONE
     Indication: Idiopathic pulmonary fibrosis
     Dosage: TID 267 MG ;ONGOING: YES?2 TABS IN THE AM, 2 TABS MID DAY AND 3 TABS AT 8 PM
     Route: 048

REACTIONS (2)
  - Oesophageal irritation [Unknown]
  - Oesophageal pain [Unknown]
